FAERS Safety Report 7129793-X (Version None)
Quarter: 2010Q4

REPORT INFORMATION
  Report Type: 
  Country: None (occurrence: None)
  Receive Date: 20101130
  Receipt Date: 20101124
  Transmission Date: 20110411
  Serious: Yes (Death)
  Sender: FDA-Public Use
  Company Number: JP-GENENTECH-309786

PATIENT
  Sex: Female

DRUGS (8)
  1. GRTPA [Suspect]
     Indication: CEREBRAL INFARCTION
     Dosage: 26.1 ML, UNK
     Route: 042
     Dates: start: 20081119, end: 20081119
  2. RADICUT [Concomitant]
     Indication: PRODUCT USED FOR UNKNOWN INDICATION
     Dosage: 60 MG, UNK
     Route: 041
     Dates: start: 20081119, end: 20081121
  3. OMEPRAL [Concomitant]
     Indication: PRODUCT USED FOR UNKNOWN INDICATION
     Dosage: 20 MG, UNK
     Route: 042
     Dates: start: 20081119, end: 20081119
  4. OMEPRAL [Concomitant]
     Dosage: 40 MG, UNK
     Dates: start: 20081120, end: 20081121
  5. GASTER [Concomitant]
     Indication: PRODUCT USED FOR UNKNOWN INDICATION
     Dosage: 20 MG, UNK
     Dates: start: 20081119, end: 20081119
  6. PERDIPINE [Concomitant]
     Indication: PRODUCT USED FOR UNKNOWN INDICATION
     Dosage: 10 MG, UNK
     Dates: start: 20081120, end: 20081120
  7. PERDIPINE [Concomitant]
     Dosage: UNK
     Dates: start: 20081121, end: 20081121
  8. CEFOTIAM HCL [Concomitant]
     Indication: PRODUCT USED FOR UNKNOWN INDICATION
     Dosage: 2 G, UNK
     Route: 042
     Dates: start: 20081121, end: 20081121

REACTIONS (1)
  - AORTIC DISSECTION [None]
